FAERS Safety Report 7262814-2 (Version None)
Quarter: 2011Q1

REPORT INFORMATION
  Report Type: 
  Country: None (occurrence: None)
  Receive Date: 20110130
  Receipt Date: 20100913
  Transmission Date: 20110831
  Serious: No
  Sender: FDA-Public Use
  Company Number: US-ABBOTT-10P-163-0670646-00

PATIENT
  Age: 62 Year
  Sex: Female

DRUGS (5)
  1. MERCAPTOPURINE [Concomitant]
     Indication: PRODUCT USED FOR UNKNOWN INDICATION
     Route: 048
  2. ACE-CAL [Concomitant]
     Route: 048
  3. HUMIRA [Suspect]
     Indication: CROHN'S DISEASE
     Dosage: FOUR 40MG INJECTIONS 10-SEP-2010
     Dates: start: 20100910
  4. ASA [Concomitant]
     Route: 048
  5. CITALOPRAM [Concomitant]
     Route: 048

REACTIONS (3)
  - COUGH [None]
  - SINUS OPERATION [None]
  - INSOMNIA [None]
